FAERS Safety Report 8856831 (Version 1)
Quarter: 2012Q4

REPORT INFORMATION
  Report Type: Spontaneous
  Country: US (occurrence: None)
  Receive Date: 20121023
  Receipt Date: 20121023
  Transmission Date: 20130627
  Serious: Yes (Death, Life-Threatening, Hospitalization)
  Sender: FDA-Public Use
  Company Number: None

PATIENT
  Age: 11 Year
  Sex: Female
  Weight: 34.47 kg

DRUGS (1)
  1. ADVAIR [Suspect]
     Indication: ASTHMA
     Dosage: 1 puff 2x a day Inhal
     Route: 055
     Dates: start: 20071210, end: 20111010

REACTIONS (8)
  - Dyspnoea [None]
  - Wheezing [None]
  - Dyspnoea [None]
  - Syncope [None]
  - Vomiting [None]
  - Pulseless electrical activity [None]
  - Endotracheal intubation complication [None]
  - Ventricular fibrillation [None]
